FAERS Safety Report 4863563-8 (Version None)
Quarter: 2005Q4

REPORT INFORMATION
  Report Type: 
  Country: None (occurrence: None)
  Receive Date: 20051222
  Receipt Date: 20050426
  Transmission Date: 20060501
  Serious: No
  Sender: FDA-Public Use
  Company Number: US-GLAXOSMITHKLINE-A0555843A

PATIENT
  Age: 84 Year
  Sex: Female

DRUGS (11)
  1. FLONASE [Suspect]
     Dosage: 2SPR PER DAY
     Route: 045
     Dates: start: 20040101, end: 20050401
  2. ANTIHYPERTENSIVE [Concomitant]
  3. ADVIL [Concomitant]
  4. SYNTHROID [Concomitant]
  5. ASPIRIN [Concomitant]
  6. HORMONE REPLACEMENT [Concomitant]
  7. ASCORBIC ACID [Concomitant]
  8. VITAMIN E [Concomitant]
  9. MULTI-VITAMIN [Concomitant]
  10. CALCIUM SUPPLEMENT [Concomitant]
  11. VITAMIN B-12 [Concomitant]

REACTIONS (1)
  - DRY MOUTH [None]
